FAERS Safety Report 23793678 (Version 1)
Quarter: 2024Q2

REPORT INFORMATION
  Report Type: Spontaneous
  Country: US (occurrence: None)
  Receive Date: 20240426
  Receipt Date: 20240426
  Transmission Date: 20240716
  Serious: Yes (Hospitalization)
  Sender: FDA-Public Use
  Company Number: None

PATIENT
  Age: 41 Year
  Sex: Female
  Weight: 67.9 kg

DRUGS (1)
  1. CYTARABINE [Suspect]
     Active Substance: CYTARABINE
     Dates: end: 20231226

REACTIONS (9)
  - Red blood cell transfusion [None]
  - Platelet transfusion [None]
  - Upper respiratory tract infection [None]
  - Body temperature increased [None]
  - Chills [None]
  - Chills [None]
  - Transfusion reaction [None]
  - Febrile neutropenia [None]
  - Headache [None]

NARRATIVE: CASE EVENT DATE: 20240103
